FAERS Safety Report 12732913 (Version 1)
Quarter: 2016Q3

REPORT INFORMATION
  Report Type: Spontaneous
  Country: US (occurrence: US)
  Receive Date: 20160911
  Receipt Date: 20160911
  Transmission Date: 20161109
  Serious: Yes (Life-Threatening, Other)
  Sender: FDA-Public Use
  Company Number: None

PATIENT
  Age: 14 Year
  Sex: Female
  Weight: 81 kg

DRUGS (2)
  1. NATURE-THROID [Concomitant]
     Active Substance: THYROID, PORCINE
  2. GLUCOPHAGE [Suspect]
     Active Substance: METFORMIN HYDROCHLORIDE
     Indication: METABOLIC SYNDROME
     Dosage: 120 TABLET PO BID
     Route: 048
     Dates: start: 20160701, end: 20160904

REACTIONS (6)
  - Fatigue [None]
  - Muscular weakness [None]
  - Depression [None]
  - Acidosis [None]
  - Intestinal dilatation [None]
  - Insomnia [None]

NARRATIVE: CASE EVENT DATE: 20160904
